FAERS Safety Report 7740262-6 (Version None)
Quarter: 2011Q3

REPORT INFORMATION
  Report Type: 
  Country: None (occurrence: None)
  Receive Date: 20110909
  Receipt Date: 20110825
  Transmission Date: 20111222
  Serious: Yes (Hospitalization)
  Sender: FDA-Public Use
  Company Number: FR-JNJFOC-20110902101

PATIENT
  Sex: Male

DRUGS (5)
  1. ACETAMINOPHEN [Suspect]
     Indication: PRODUCT USED FOR UNKNOWN INDICATION
     Route: 048
     Dates: start: 20110812, end: 20110814
  2. ACETAMINOPHEN [Suspect]
     Route: 048
     Dates: start: 20110808, end: 20110811
  3. ACETAMINOPHEN AND TRAMADOL HCL [Suspect]
     Indication: PRODUCT USED FOR UNKNOWN INDICATION
     Route: 048
     Dates: start: 20110812, end: 20110814
  4. ACETAMINOPHEN AND TRAMADOL HCL [Suspect]
     Route: 048
     Dates: start: 20110811, end: 20110811
  5. TRAMADOL HCL [Suspect]
     Indication: PRODUCT USED FOR UNKNOWN INDICATION
     Route: 048
     Dates: start: 20110812, end: 20110814

REACTIONS (2)
  - CYTOLYTIC HEPATITIS [None]
  - HEPATOCELLULAR INJURY [None]
